FAERS Safety Report 21884126 (Version 1)
Quarter: 2023Q1

REPORT INFORMATION
  Report Type: Spontaneous
  Country: US (occurrence: None)
  Receive Date: 20230118
  Receipt Date: 20230118
  Transmission Date: 20230417
  Serious: No
  Sender: FDA-Public Use
  Company Number: None

PATIENT
  Age: 54 Year
  Sex: Female
  Weight: 124.2 kg

DRUGS (7)
  1. PAXLOVID [Suspect]
     Active Substance: NIRMATRELVIR\RITONAVIR
     Indication: COVID-19
     Dosage: OTHER QUANTITY : 3 CAPSULE(S);?FREQUENCY : TWICE A DAY;?
     Route: 048
     Dates: start: 20230109, end: 20230110
  2. LOSARTAN [Concomitant]
     Active Substance: LOSARTAN
  3. VENTOLIN [Concomitant]
     Active Substance: ALBUTEROL SULFATE
  4. VITAMINS [Concomitant]
     Active Substance: VITAMINS
  5. ZYRTEC [Concomitant]
     Active Substance: CETIRIZINE HYDROCHLORIDE
  6. ROBITUSSIN (GUAIFENESIN) [Concomitant]
     Active Substance: GUAIFENESIN
  7. VICKS NYQUIL [Concomitant]
     Active Substance: ACETAMINOPHEN\DEXTROMETHORPHAN HYDROBROMIDE\DOXYLAMINE SUCCINATE

REACTIONS (6)
  - Rash erythematous [None]
  - Throat tightness [None]
  - Chest discomfort [None]
  - Paraesthesia oral [None]
  - Lip erythema [None]
  - Lip swelling [None]

NARRATIVE: CASE EVENT DATE: 20230110
